FAERS Safety Report 14334749 (Version 1)
Quarter: 2017Q4

REPORT INFORMATION
  Report Type: Spontaneous
  Country: GB (occurrence: GB)
  Receive Date: 20171228
  Receipt Date: 20171228
  Transmission Date: 20180321
  Serious: Yes (Other)
  Sender: FDA-Public Use
  Company Number: GB-BAXTER-2017BAX044085

PATIENT
  Age: 22 Year
  Sex: Female
  Weight: 65 kg

DRUGS (3)
  1. SUMATRIPTAN. [Concomitant]
     Active Substance: SUMATRIPTAN
     Indication: PRODUCT USED FOR UNKNOWN INDICATION
     Dosage: TAKE ONE AS DIRECTED. DOSE MAY BE REPEATED
     Route: 065
     Dates: start: 20171013
  2. NAPROXEN. [Concomitant]
     Active Substance: NAPROXEN
     Indication: PRODUCT USED FOR UNKNOWN INDICATION
     Dosage: WITH OR JUST AFTER FOOD
     Route: 065
     Dates: start: 20170919, end: 20171003
  3. METRONIDAZOLE 5 MG/ML SOLUTION FOR INFUSION [Suspect]
     Active Substance: METRONIDAZOLE
     Indication: PRODUCT USED FOR UNKNOWN INDICATION
     Route: 065
     Dates: start: 20171207

REACTIONS (3)
  - Dysgeusia [Unknown]
  - Malaise [Unknown]
  - Dizziness [Recovering/Resolving]

NARRATIVE: CASE EVENT DATE: 20171207
